FAERS Safety Report 7104749-1 (Version None)
Quarter: 2010Q4

REPORT INFORMATION
  Report Type: 
  Country: None (occurrence: None)
  Receive Date: 20101116
  Receipt Date: 20101101
  Transmission Date: 20110411
  Serious: Yes (Other)
  Sender: FDA-Public Use
  Company Number: TW-JNJFOC-20101104937

PATIENT
  Sex: Male
  Weight: 64 kg

DRUGS (3)
  1. RISPERDAL [Suspect]
     Indication: ILL-DEFINED DISORDER
     Route: 065
  2. DEPAKENE [Suspect]
     Indication: ILL-DEFINED DISORDER
     Route: 065
  3. DIAZEPAM [Suspect]
     Indication: ILL-DEFINED DISORDER
     Route: 065

REACTIONS (5)
  - DYSTHYMIC DISORDER [None]
  - HEPATITIS [None]
  - NEUROLEPTIC MALIGNANT SYNDROME [None]
  - SCHIZOPHRENIA [None]
  - SKIN DISORDER [None]
